FAERS Safety Report 11249114 (Version 1)
Quarter: 2015Q3

REPORT INFORMATION
  Report Type: Spontaneous
  Country: US (occurrence: US)
  Receive Date: 20150708
  Receipt Date: 20150708
  Transmission Date: 20151125
  Serious: Yes (Other)
  Sender: FDA-Public Use
  Company Number: US-ELI_LILLY_AND_COMPANY-US200811005178

PATIENT
  Age: 62 Year
  Sex: Male

DRUGS (11)
  1. LISINOPRIL. [Concomitant]
     Active Substance: LISINOPRIL
  2. COMPAZINE /00013304/ [Concomitant]
  3. ALIMTA [Suspect]
     Active Substance: PEMETREXED DISODIUM
     Indication: MESOTHELIOMA
  4. VITAMIN B12 [Concomitant]
     Active Substance: CYANOCOBALAMIN
  5. FOLIC ACID. [Concomitant]
     Active Substance: FOLIC ACID
  6. EFFEXOR [Concomitant]
     Active Substance: VENLAFAXINE HYDROCHLORIDE
  7. VICODIN [Concomitant]
     Active Substance: ACETAMINOPHEN\HYDROCODONE BITARTRATE
  8. HYDROCHLOROTHIAZIDE. [Concomitant]
     Active Substance: HYDROCHLOROTHIAZIDE
  9. CISPLATIN. [Concomitant]
     Active Substance: CISPLATIN
     Indication: MESOTHELIOMA
  10. ATIVAN [Concomitant]
     Active Substance: LORAZEPAM
  11. SENOKOT [Concomitant]
     Active Substance: SENNOSIDES

REACTIONS (2)
  - Colitis [Recovering/Resolving]
  - Colitis ischaemic [Recovering/Resolving]

NARRATIVE: CASE EVENT DATE: 20081101
